FAERS Safety Report 5322216-2 (Version None)
Quarter: 2007Q2

REPORT INFORMATION
  Report Type: 
  Country: None (occurrence: None)
  Receive Date: 20070511
  Receipt Date: 20070502
  Transmission Date: 20071010
  Serious: Yes (Death, Other)
  Sender: FDA-Public Use
  Company Number: GB-PURDUE-GBR_2006_0002498

PATIENT
  Age: 41 Year
  Sex: Male
  Weight: 72 kg

DRUGS (7)
  1. MORPHINE SULFATE [Suspect]
     Indication: DRUG USE FOR UNKNOWN INDICATION
     Route: 065
  2. SUBUTEX [Suspect]
     Indication: DRUG DEPENDENCE
     Dosage: 14 MG, QID
     Route: 060
     Dates: start: 20051115, end: 20051128
  3. AMOXICILLIN + CLAVULANATE POTASSIUM [Concomitant]
     Indication: EAR INFECTION
     Dosage: 375 MG, 2/WEEK
     Route: 065
     Dates: start: 20051115
  4. DIHYDROCODEINE BITARTRATE INJ [Concomitant]
     Indication: DRUG DEPENDENCE
     Route: 065
     Dates: start: 20010101, end: 20051001
  5. DOTHIEPIN HYDROCHLORIDE [Concomitant]
     Indication: SLEEP DISORDER
     Route: 065
     Dates: start: 20030601
  6. IBUPROFEN [Concomitant]
     Indication: EAR PAIN
     Route: 048
  7. LOCORTEN-VIOFORM [Concomitant]
     Indication: EAR INFECTION
     Route: 001
     Dates: start: 20051115

REACTIONS (5)
  - AORTIC VALVE CALCIFICATION [None]
  - AORTIC VALVE STENOSIS [None]
  - LEFT VENTRICULAR HYPERTROPHY [None]
  - OVERDOSE [None]
  - PULMONARY OEDEMA [None]
